FAERS Safety Report 8679728 (Version 2)
Quarter: 2012Q4

REPORT INFORMATION
  Report Type: 
  Country: US (occurrence: US)
  Receive Date: 20120724
  Receipt Date: 20120829
  Transmission Date: 20130627
  Serious: Yes (Other)
  Sender: FDA-Public Use
  Company Number: PHEH2012US014284

PATIENT
  Age: 65 None
  Sex: Female

DRUGS (1)
  1. DIOVAN [Suspect]
     Indication: BLOOD PRESSURE
     Dosage: 320 mg, QD

REACTIONS (3)
  - Bone marrow failure [Unknown]
  - Polycythaemia vera [Unknown]
  - Myelofibrosis [Unknown]
